FAERS Safety Report 11114991 (Version 5)
Quarter: 2015Q3

REPORT INFORMATION
  Report Type: Report from Study
  Country: US (occurrence: US)
  Receive Date: 20150515
  Receipt Date: 20150826
  Transmission Date: 20151125
  Serious: Yes (Hospitalization)
  Sender: FDA-Public Use
  Company Number: US-BIOGENIDEC-2015BI061888

PATIENT
  Age: 56 Year
  Sex: Male

DRUGS (1)
  1. PLEGRIDY [Suspect]
     Active Substance: PEGINTERFERON BETA-1A
     Indication: MULTIPLE SCLEROSIS
     Route: 058
     Dates: start: 20150116, end: 20150401

REACTIONS (2)
  - Cerebrovascular accident [Recovered/Resolved]
  - Influenza like illness [Recovered/Resolved]

NARRATIVE: CASE EVENT DATE: 20150401
